FAERS Safety Report 12483235 (Version 1)
Quarter: 2016Q2

REPORT INFORMATION
  Report Type: Report from Study
  Country: US (occurrence: US)
  Receive Date: 20160621
  Receipt Date: 20160621
  Transmission Date: 20160815
  Serious: Yes (Hospitalization)
  Sender: FDA-Public Use
  Company Number: US-ROCHE-1751479

PATIENT
  Age: 58 Year
  Sex: Female

DRUGS (12)
  1. PREDNISONE. [Concomitant]
     Active Substance: PREDNISONE
     Route: 048
     Dates: start: 20141229
  2. LEVOTHYROXINE SODIUM. [Concomitant]
     Active Substance: LEVOTHYROXINE SODIUM
     Route: 048
     Dates: start: 20071015
  3. HYDROCHLOROTHIAZIDE. [Concomitant]
     Active Substance: HYDROCHLOROTHIAZIDE
  4. RITUXIMAB [Suspect]
     Active Substance: RITUXIMAB
     Indication: ANTI-NEUTROPHIL CYTOPLASMIC ANTIBODY POSITIVE VASCULITIS
     Dosage: DATE OF LAST DOSE PRIOR TO SAE: 07-APR-2016
     Route: 042
     Dates: start: 20140731
  5. OMEPRAZOLE. [Concomitant]
     Active Substance: OMEPRAZOLE
     Route: 048
     Dates: start: 20071015
  6. BUDESONIDE. [Concomitant]
     Active Substance: BUDESONIDE
     Route: 050
  7. ALBUTEROL SULFATE. [Concomitant]
     Active Substance: ALBUTEROL SULFATE
     Route: 050
     Dates: start: 20150707
  8. DULOXETINE. [Concomitant]
     Active Substance: DULOXETINE
     Route: 048
     Dates: start: 20081117
  9. MONTELUKAST [Concomitant]
     Active Substance: MONTELUKAST SODIUM
     Route: 048
     Dates: start: 20141229
  10. ROSUVASTATIN CALCIUM. [Concomitant]
     Active Substance: ROSUVASTATIN CALCIUM
     Route: 048
     Dates: start: 20081117
  11. SAXAGLIPTIN [Concomitant]
     Active Substance: SAXAGLIPTIN
     Dosage: AS NEEDED
     Route: 048
     Dates: start: 20140410
  12. SULFAMETHOXAZOLE/TRIMETHOPRIM [Concomitant]
     Active Substance: SULFAMETHOXAZOLE\TRIMETHOPRIM
     Dosage: 800-160 MG, EVERY OTHER DAY
     Route: 065
     Dates: start: 20071015

REACTIONS (2)
  - Parainfluenzae virus infection [Not Recovered/Not Resolved]
  - Bronchospasm [Not Recovered/Not Resolved]

NARRATIVE: CASE EVENT DATE: 20160426
